FAERS Safety Report 4690204-5 (Version None)
Quarter: 2005Q2

REPORT INFORMATION
  Report Type: 
  Country: None (occurrence: None)
  Receive Date: 20050613
  Receipt Date: 20050531
  Transmission Date: 20051028
  Serious: Yes (Hospitalization, Other)
  Sender: FDA-Public Use
  Company Number: 2005082765

PATIENT
  Sex: Female

DRUGS (2)
  1. ZYRTEC [Suspect]
     Indication: ILL-DEFINED DISORDER
     Dosage: ORAL
     Route: 048
  2. SUDAFED 12 HOUR [Suspect]
     Indication: HEADACHE
     Dosage: UNKNOWN
     Route: 065

REACTIONS (2)
  - CARDIAC ARREST [None]
  - HEADACHE [None]
